FAERS Safety Report 15225564 (Version 1)
Quarter: 2018Q3

REPORT INFORMATION
  Report Type: Report from Study
  Country: US (occurrence: US)
  Receive Date: 20180801
  Receipt Date: 20180801
  Transmission Date: 20181010
  Serious: Yes (Life-Threatening)
  Sender: FDA-Public Use
  Company Number: US-BIOGEN-2018BI00614597

PATIENT
  Sex: Female

DRUGS (1)
  1. TYSABRI [Suspect]
     Active Substance: NATALIZUMAB
     Indication: MULTIPLE SCLEROSIS
     Route: 065
     Dates: start: 20071220, end: 20171221

REACTIONS (5)
  - Malaise [Unknown]
  - Multiple sclerosis relapse [Unknown]
  - Apparent death [Unknown]
  - Memory impairment [Unknown]
  - Reading disorder [Unknown]
